FAERS Safety Report 5283566-1 (Version None)
Quarter: 2007Q2

REPORT INFORMATION
  Report Type: 
  Country: None (occurrence: None)
  Receive Date: 20070402
  Receipt Date: 20070321
  Transmission Date: 20071010
  Serious: Yes (Life-Threatening)
  Sender: FDA-Public Use
  Company Number: NZ-ROCHE-483849

PATIENT
  Age: 52 Year
  Sex: Female
  Weight: 79.4 kg

DRUGS (1)
  1. XELODA [Suspect]
     Indication: DRUG USE FOR UNKNOWN INDICATION
     Route: 048
     Dates: start: 20070119, end: 20070123

REACTIONS (2)
  - CARDIOGENIC SHOCK [None]
  - CARDIOTOXICITY [None]
